FAERS Safety Report 16409583 (Version 1)
Quarter: 2019Q2

REPORT INFORMATION
  Report Type: Spontaneous
  Country: ES (occurrence: ES)
  Receive Date: 20190610
  Receipt Date: 20190610
  Transmission Date: 20190711
  Serious: Yes (Other)
  Sender: FDA-Public Use
  Company Number: ES-ACCORD-131929

PATIENT
  Age: 65 Year
  Sex: Male
  Weight: 91 kg

DRUGS (1)
  1. OXALIPLATIN ACCORD [Suspect]
     Active Substance: OXALIPLATIN
     Indication: COLON NEOPLASM
     Dosage: STRENGTH: 5 MG / ML,  1 VIAL OF 20 ML
     Route: 042
     Dates: start: 20190305, end: 20190305

REACTIONS (3)
  - Pruritus [Recovered/Resolved]
  - Sense of oppression [Recovered/Resolved]
  - Erythema [Recovered/Resolved]

NARRATIVE: CASE EVENT DATE: 20190305
